FAERS Safety Report 7659401-0 (Version None)
Quarter: 2011Q3

REPORT INFORMATION
  Report Type: 
  Country: None (occurrence: None)
  Receive Date: 20110805
  Receipt Date: 20110802
  Transmission Date: 20111222
  Serious: Yes (Other)
  Sender: FDA-Public Use
  Company Number: JP-GENZYME-FLUD-1000389

PATIENT
  Age: 54 Year
  Sex: Male
  Weight: 69 kg

DRUGS (16)
  1. THYMOGLOBULIN [Suspect]
     Indication: STEM CELL TRANSPLANT
     Dosage: 128.0 MG, ONCE
     Route: 042
     Dates: start: 20090211, end: 20090211
  2. HYDROCORTISONE SODIUM SUCCINATE [Concomitant]
     Indication: PREMEDICATION
     Dosage: UNK
     Route: 065
     Dates: start: 20090211, end: 20090211
  3. MELPHALAN HYDROCHLORIDE [Concomitant]
     Indication: MULTIPLE MYELOMA
     Dosage: UNK
     Route: 065
     Dates: start: 20090215, end: 20090216
  4. TACROLIMUS [Concomitant]
     Indication: PROPHYLAXIS AGAINST GRAFT VERSUS HOST DISEASE
     Dosage: UNK
     Route: 065
     Dates: start: 20090217, end: 20090926
  5. SULFAMETHOXAZOLE [Concomitant]
     Indication: PROPHYLAXIS
     Dosage: UNK
     Route: 065
     Dates: start: 20090128, end: 20090210
  6. THYMOGLOBULIN [Suspect]
     Indication: MULTIPLE MYELOMA
  7. ACETAMINOPHEN [Concomitant]
     Indication: PYREXIA
  8. FILGRASTIM [Concomitant]
     Indication: PROPHYLAXIS
     Dosage: UNK
     Route: 065
     Dates: start: 20090219, end: 20090309
  9. CHLORPHENIRAMINE MALEATE [Concomitant]
     Indication: PREMEDICATION
     Dosage: UNK
     Route: 065
     Dates: start: 20090211, end: 20090211
  10. ACYCLOVIR [Concomitant]
     Indication: ANTIVIRAL PROPHYLAXIS
     Dosage: UNK
     Route: 065
     Dates: start: 20090215, end: 20090304
  11. FLUDARA [Suspect]
     Indication: MULTIPLE MYELOMA
  12. CIPROFLOXACIN HYDROCHLORIDE [Concomitant]
     Indication: ANTIBIOTIC PROPHYLAXIS
     Dosage: 600 MG, UNK
     Route: 065
     Dates: start: 20090204, end: 20090228
  13. FLUCONAZOLE [Concomitant]
     Indication: ANTIFUNGAL PROPHYLAXIS
  14. FLUDARA [Suspect]
     Indication: STEM CELL TRANSPLANT
     Dosage: 25 MG/M2, QDX5
     Route: 042
     Dates: start: 20090212, end: 20090216
  15. HYDROCORTISONE SODIUM SUCCINATE [Concomitant]
     Indication: PYREXIA
  16. ACETAMINOPHEN [Concomitant]
     Indication: PREMEDICATION
     Dosage: UNK
     Route: 065
     Dates: start: 20090211, end: 20090211

REACTIONS (4)
  - MULTIPLE MYELOMA [None]
  - ACUTE GRAFT VERSUS HOST DISEASE [None]
  - CYTOMEGALOVIRUS GASTROENTERITIS [None]
  - PYREXIA [None]
